FAERS Safety Report 19666310 (Version 3)
Quarter: 2022Q1

REPORT INFORMATION
  Report Type: Report from Study
  Country: DE (occurrence: DE)
  Receive Date: 20210806
  Receipt Date: 20220127
  Transmission Date: 20220423
  Serious: Yes (Other)
  Sender: FDA-Public Use
  Company Number: DE-LEO PHARMA-335379

PATIENT
  Sex: Female

DRUGS (1)
  1. BRODALUMAB [Suspect]
     Active Substance: BRODALUMAB
     Indication: Psoriasis
     Dosage: FIRST INJECTION IN THE 10TH WEEK OF WIFE^S PREGNANCY THEN BI-WEEKLY
     Route: 058

REACTIONS (1)
  - Maternal exposure via partner during pregnancy [Unknown]
